FAERS Safety Report 22361436 (Version 1)
Quarter: 2023Q2

REPORT INFORMATION
  Report Type: Report from Study
  Country: GB (occurrence: GB)
  Receive Date: 20230524
  Receipt Date: 20230524
  Transmission Date: 20230722
  Serious: Yes (Other)
  Sender: FDA-Public Use
  Company Number: GB-SAMSUNG BIOEPIS-SB-2023-09771

PATIENT
  Age: 49 Year
  Sex: Male

DRUGS (1)
  1. IMRALDI [Suspect]
     Active Substance: ADALIMUMAB
     Indication: Ankylosing spondylitis
     Dosage: STRENGTH 40 MG/0.8 ML;
     Route: 058
     Dates: start: 20230306

REACTIONS (7)
  - Anal haemorrhage [Unknown]
  - Lymphadenopathy [Unknown]
  - Fatigue [Unknown]
  - Furuncle [Unknown]
  - Brain fog [Not Recovered/Not Resolved]
  - Musculoskeletal stiffness [Not Recovered/Not Resolved]
  - Headache [Not Recovered/Not Resolved]
